FAERS Safety Report 13351846 (Version 2)
Quarter: 2017Q2

REPORT INFORMATION
  Report Type: Report from Study
  Country: US (occurrence: CR)
  Receive Date: 20170320
  Receipt Date: 20170406
  Transmission Date: 20170830
  Serious: No
  Sender: FDA-Public Use
  Company Number: US-SUNOVION-2017SUN001212

PATIENT
  Sex: Male
  Weight: 60 kg

DRUGS (4)
  1. MELATONIN [Concomitant]
     Active Substance: MELATONIN
     Dosage: UNK
  2. INDACATEROL AND GLYCOPYRROLATE [Suspect]
     Active Substance: GLYCOPYRROLATE\INDACATEROL MALEATE
     Indication: PULMONARY FIBROSIS
     Dosage: 1 DF (0.11/0.05 MG), QD;  REGIMEN #1
     Route: 055
     Dates: start: 20170310
  3. INDACATEROL AND GLYCOPYRROLATE [Suspect]
     Active Substance: GLYCOPYRROLATE\INDACATEROL MALEATE
     Dosage: 2 DF (0.11/0.05 MG), QD
     Route: 055
  4. ZOPLICONE [Suspect]
     Active Substance: ZOPICLONE
     Indication: PRODUCT USED FOR UNKNOWN INDICATION
     Dosage: 75 MG, HS
     Route: 048

REACTIONS (6)
  - Dyspnoea [Recovering/Resolving]
  - Incorrect dose administered [Unknown]
  - Emphysema [Unknown]
  - Product use issue [Unknown]
  - Wheezing [Recovering/Resolving]
  - Dizziness [Unknown]
